FAERS Safety Report 8775332 (Version 2)
Quarter: 2016Q3

REPORT INFORMATION
  Report Type: Spontaneous
  Country: US (occurrence: US)
  Receive Date: 20120910
  Receipt Date: 20160817
  Transmission Date: 20161109
  Serious: Yes (Hospitalization, Disabling, Other)
  Sender: FDA-Public Use
  Company Number: US-009507513-1206USA02949

PATIENT
  Sex: Female
  Weight: 66.21 kg

DRUGS (10)
  1. CALCIUM (UNSPECIFIED) [Concomitant]
     Active Substance: CALCIUM
     Indication: OSTEOPOROSIS
     Route: 065
  2. CALCIUM (UNSPECIFIED) (+) VITAMIN D (UNSPECIFIED) [Concomitant]
     Active Substance: CALCIUM CARBONATE\VITAMIN D
     Indication: OSTEOPENIA
  3. FOSAMAX [Suspect]
     Active Substance: ALENDRONATE SODIUM
     Indication: OSTEOPENIA
     Dosage: 70 MG, QW
     Route: 048
     Dates: end: 2010
  4. ALENDRONATE SODIUM. [Suspect]
     Active Substance: ALENDRONATE SODIUM
     Indication: OSTEOPOROSIS
     Dosage: 70 MG, QW
     Route: 048
     Dates: start: 20080717
  5. ALENDRONATE SODIUM. [Suspect]
     Active Substance: ALENDRONATE SODIUM
     Indication: OSTEOPENIA
  6. CALCIUM (UNSPECIFIED) [Concomitant]
     Active Substance: CALCIUM
     Indication: OSTEOPENIA
  7. MIACALCIN [Concomitant]
     Active Substance: CALCITONIN SALMON
     Indication: OSTEOPOROSIS
     Route: 065
  8. CALCIUM (UNSPECIFIED) (+) VITAMIN D (UNSPECIFIED) [Concomitant]
     Active Substance: CALCIUM CARBONATE\VITAMIN D
     Indication: OSTEOPOROSIS
     Route: 065
  9. FOSAMAX [Suspect]
     Active Substance: ALENDRONATE SODIUM
     Indication: OSTEOPOROSIS
     Dosage: 10 MG, QD
     Route: 048
     Dates: start: 1997, end: 2010
  10. MIACALCIN [Concomitant]
     Active Substance: CALCITONIN SALMON
     Indication: OSTEOPENIA

REACTIONS (61)
  - Femur fracture [Recovering/Resolving]
  - Shoulder operation [Unknown]
  - Blue toe syndrome [Unknown]
  - Fatigue [Unknown]
  - Dry eye [Unknown]
  - Melanocytic naevus [Unknown]
  - Atrial tachycardia [Unknown]
  - Myalgia [Unknown]
  - Ligament sprain [Unknown]
  - Arthroscopy [Unknown]
  - Upper respiratory tract infection [Unknown]
  - Intracranial mass [Unknown]
  - Joint effusion [Unknown]
  - Chronic sinusitis [Not Recovered/Not Resolved]
  - Small intestinal resection [Unknown]
  - Cerumen impaction [Unknown]
  - Epistaxis [Unknown]
  - Flatulence [Unknown]
  - Arthralgia [Unknown]
  - Sigmoidectomy [Unknown]
  - Large intestine anastomosis [Unknown]
  - Upper limb fracture [Unknown]
  - Sinusitis [Unknown]
  - Hypertension [Unknown]
  - Chest pain [Unknown]
  - Excessive cerumen production [Unknown]
  - Oedema peripheral [Unknown]
  - Exostosis [Unknown]
  - Wrist fracture [Unknown]
  - Hiatus hernia [Unknown]
  - Osteoarthritis [Unknown]
  - Cataract [Unknown]
  - Laparoscopy [Unknown]
  - Adverse drug reaction [Unknown]
  - Hypoaesthesia [Unknown]
  - Muscular weakness [Unknown]
  - Nerve compression [Unknown]
  - Suture related complication [Unknown]
  - Joint injury [Unknown]
  - Synovial cyst [Unknown]
  - Wrist deformity [Unknown]
  - Nasal septum deviation [Unknown]
  - Osteoarthritis [Unknown]
  - Stress [Unknown]
  - Cholelithiasis [Unknown]
  - Appendicectomy [Unknown]
  - Lactose intolerance [Unknown]
  - Adverse drug reaction [Unknown]
  - Peripheral swelling [Unknown]
  - Headache [Unknown]
  - Gastrooesophageal reflux disease [Unknown]
  - Gastrooesophageal reflux disease [Unknown]
  - Colectomy [Unknown]
  - Cerebral haemorrhage [Unknown]
  - Irritable bowel syndrome [Unknown]
  - Rheumatoid arthritis [Unknown]
  - Gastric polyps [Unknown]
  - Anaemia [Unknown]
  - Arthralgia [Unknown]
  - Peripheral swelling [Recovered/Resolved]
  - Flatulence [Unknown]

NARRATIVE: CASE EVENT DATE: 1998
